FAERS Safety Report 13363985 (Version 1)
Quarter: 2017Q1

REPORT INFORMATION
  Report Type: Spontaneous
  Country: AU (occurrence: AU)
  Receive Date: 20170323
  Receipt Date: 20170323
  Transmission Date: 20170429
  Serious: Yes (Other)
  Sender: FDA-Public Use
  Company Number: AU-IMPAX LABORATORIES, INC-2017-IPXL-00666

PATIENT
  Age: 41 Year
  Sex: Female

DRUGS (5)
  1. ALPRAZOLAM ER [Suspect]
     Active Substance: ALPRAZOLAM
     Indication: PRODUCT USED FOR UNKNOWN INDICATION
     Dosage: 1-2 MG, DAILY
     Route: 065
  2. TRANYLCYPROMINE [Interacting]
     Active Substance: TRANYLCYPROMINE
     Indication: DEPRESSION
     Dosage: BETWEEN 100 AND 130 MG, DAILY
     Route: 065
  3. DIAZEPAM. [Interacting]
     Active Substance: DIAZEPAM
     Indication: PRODUCT USED FOR UNKNOWN INDICATION
     Dosage: 5-10 MG, DAILY
     Route: 065
  4. PIMOZIDE. [Interacting]
     Active Substance: PIMOZIDE
     Indication: PRODUCT USED FOR UNKNOWN INDICATION
     Dosage: 1-2 MG, DAILY
     Route: 065
  5. TRANYLCYPROMINE [Interacting]
     Active Substance: TRANYLCYPROMINE
     Dosage: BETWEEN 100-120 MG, DAILY
     Route: 065

REACTIONS (3)
  - Drug interaction [Unknown]
  - Placental infarction [Unknown]
  - Exposure during pregnancy [Unknown]
